FAERS Safety Report 13524997 (Version 1)
Quarter: 2017Q2

REPORT INFORMATION
  Report Type: Spontaneous
  Country: US (occurrence: US)
  Receive Date: 20170508
  Receipt Date: 20170508
  Transmission Date: 20170830
  Serious: Yes (Other)
  Sender: FDA-Public Use
  Company Number: US-ROCHE-1138795

PATIENT

DRUGS (2)
  1. CPT-11 [Concomitant]
     Active Substance: IRINOTECAN
     Indication: GLIOBLASTOMA MULTIFORME
  2. AVASTIN [Suspect]
     Active Substance: BEVACIZUMAB
     Indication: GLIOBLASTOMA MULTIFORME
     Route: 065

REACTIONS (1)
  - Cardiac failure congestive [Unknown]
